FAERS Safety Report 8550927-4 (Version None)
Quarter: 2012Q3

REPORT INFORMATION
  Report Type: 
  Country: None (occurrence: None)
  Receive Date: 20120730
  Receipt Date: 20110804
  Transmission Date: 20120928
  Serious: No
  Sender: FDA-Public Use
  Company Number: US-ALLERGAN-1110543US

PATIENT
  Sex: Female

DRUGS (4)
  1. LATISSE [Suspect]
     Indication: HYPOTRICHOSIS
     Dosage: 1 GTT, PRN
     Route: 061
     Dates: start: 20110601
  2. LATISSE [Suspect]
     Dosage: UNK
     Dates: start: 20100101
  3. CELLUVISC [Concomitant]
     Indication: DRY EYE
  4. FACIAL CLEANING WIPES FROM COSTSO [Suspect]
     Indication: REMOVAL OF INERT MATTER FROM SKIN OR SUBCUTANEOUS TISSUE
     Dosage: UNK
     Dates: end: 20110808

REACTIONS (2)
  - EYE IRRITATION [None]
  - OCULAR HYPERAEMIA [None]
